FAERS Safety Report 20495305 (Version 1)
Quarter: 2022Q1

REPORT INFORMATION
  Report Type: Spontaneous
  Country: DE (occurrence: DE)
  Receive Date: 20220221
  Receipt Date: 20220221
  Transmission Date: 20220423
  Serious: Yes (Other)
  Sender: FDA-Public Use
  Company Number: DE-NOVARTISPH-NVSC2022DE038220

PATIENT
  Age: 81 Year
  Sex: Female

DRUGS (1)
  1. FEMARA [Suspect]
     Active Substance: LETROZOLE
     Indication: Breast cancer
     Dosage: 5 MG, QD
     Route: 065
     Dates: start: 2019

REACTIONS (4)
  - Polymyalgia rheumatica [Recovering/Resolving]
  - Myopathy [Recovering/Resolving]
  - Osteoarthritis [Unknown]
  - Incorrect dose administered [Unknown]

NARRATIVE: CASE EVENT DATE: 20190101
